FAERS Safety Report 7964631-4 (Version None)
Quarter: 2011Q4

REPORT INFORMATION
  Report Type: 
  Country: None (occurrence: None)
  Receive Date: 20111121
  Receipt Date: 20110722
  Transmission Date: 20120403
  Serious: No
  Sender: FDA-Public Use
  Company Number: 1000022420

PATIENT
  Age: 36 Year
  Sex: Female

DRUGS (8)
  1. MELATONIN (MELATONIN) (MELATONIN) [Concomitant]
  2. VIIBRYD [Suspect]
     Indication: DEPRESSION
     Dosage: 10 MG (10 MG, 1 IN 1 D), ORAL
     Route: 048
     Dates: start: 20110716
  3. VIIBRYD [Suspect]
     Indication: STRESS
     Dosage: 10 MG (10 MG, 1 IN 1 D), ORAL
     Route: 048
     Dates: start: 20110716
  4. VIIBRYD [Suspect]
     Indication: ANXIETY
     Dosage: 10 MG (10 MG, 1 IN 1 D), ORAL
     Route: 048
     Dates: start: 20110716
  5. PROTONIX [Concomitant]
  6. IMITREX (SUMATRIPTAN) (SUMATRIPTAN) [Concomitant]
  7. MAGTRATE (MAGNESIUM GLUCONATE) (MAGNESIUM GLUCONATE) [Concomitant]
  8. ETODOLAC (ETODOLAC) (ETODOLAC) [Concomitant]

REACTIONS (8)
  - SALIVARY HYPERSECRETION [None]
  - DECREASED APPETITE [None]
  - DIARRHOEA [None]
  - ABDOMINAL PAIN UPPER [None]
  - ABDOMINAL DISTENSION [None]
  - ABDOMINAL PAIN [None]
  - NAUSEA [None]
  - GASTROINTESTINAL SOUNDS ABNORMAL [None]
